FAERS Safety Report 4302034-4 (Version None)
Quarter: 2004Q1

REPORT INFORMATION
  Report Type: 
  Country: None (occurrence: None)
  Receive Date: 20040220
  Receipt Date: 20040209
  Transmission Date: 20041129
  Serious: Yes (Other)
  Sender: FDA-Public Use
  Company Number: 2004008693

PATIENT
  Sex: Female

DRUGS (3)
  1. NEURONTIN [Suspect]
     Indication: ABDOMINAL PAIN
     Dosage: 900 MG TIC
  2. ORAL CONTRACEPTIVES NOS [Concomitant]
  3. OMEPRAZOLE [Concomitant]

REACTIONS (5)
  - DIZZINESS [None]
  - FALL [None]
  - HYPOAESTHESIA [None]
  - INCONTINENCE [None]
  - LOSS OF CONSCIOUSNESS [None]
